FAERS Safety Report 7041147-3 (Version None)
Quarter: 2010Q4

REPORT INFORMATION
  Report Type: 
  Country: None (occurrence: None)
  Receive Date: 20101006
  Receipt Date: 20100928
  Transmission Date: 20110411
  Serious: Yes (Other)
  Sender: FDA-Public Use
  Company Number: 2010SP052179

PATIENT
  Age: 34 Year
  Sex: Female
  Weight: 69 kg

DRUGS (2)
  1. ORMIGREIN (ORMIGREIN /01755201/) [Suspect]
     Indication: MIGRAINE
     Dosage: UNK; PO
     Route: 048
     Dates: start: 20000101, end: 20100920
  2. CEFALIV [Concomitant]

REACTIONS (3)
  - DRUG DEPENDENCE [None]
  - OVERDOSE [None]
  - TREATMENT FAILURE [None]
